FAERS Safety Report 9224082 (Version 1)
Quarter: 2013Q2

REPORT INFORMATION
  Report Type: Spontaneous
  Country: US (occurrence: US)
  Receive Date: 20130411
  Receipt Date: 20130411
  Transmission Date: 20140414
  Serious: No
  Sender: FDA-Public Use
  Company Number: US-009507513-1303USA007138

PATIENT
  Age: 64 Year
  Sex: Male

DRUGS (2)
  1. PEG-INTRON [Suspect]
     Indication: CHRONIC HEPATITIS C
     Dosage: UNK
     Dates: start: 20130209
  2. REBETOL [Suspect]
     Indication: CHRONIC HEPATITIS C
     Dosage: UNK
     Route: 048
     Dates: start: 20130209

REACTIONS (8)
  - Fatigue [Unknown]
  - Irritability [Unknown]
  - Dyspnoea [Unknown]
  - Sneezing [Unknown]
  - Eye pruritus [Unknown]
  - Palpitations [Unknown]
  - Leukopenia [Unknown]
  - Insomnia [Unknown]
